FAERS Safety Report 6158473-2 (Version None)
Quarter: 2009Q2

REPORT INFORMATION
  Report Type: 
  Country: None (occurrence: None)
  Receive Date: 20090408
  Receipt Date: 20090121
  Transmission Date: 20091009
  Serious: Yes (Death)
  Sender: FDA-Public Use
  Company Number: BMS-LI-2009-0036-V001

PATIENT
  Age: 59 Year
  Sex: Male

DRUGS (7)
  1. TRAZODONE HYDROCHLORIDE [Suspect]
  2. ATENOLOL [Suspect]
  3. NALTREXONE HYDROCHLORIDE [Suspect]
  4. DESIPRAMIDE HCL [Suspect]
  5. SALSALATE [Suspect]
  6. LEVOTHYROXINE SODIUM [Suspect]
  7. ALCOHOL [Suspect]

REACTIONS (1)
  - COMPLETED SUICIDE [None]
